FAERS Safety Report 9230913 (Version 7)
Quarter: 2013Q3

REPORT INFORMATION
  Report Type: Report from Study
  Country: DE (occurrence: DE)
  Receive Date: 20130415
  Receipt Date: 20130824
  Transmission Date: 20140515
  Serious: Yes (Hospitalization)
  Sender: FDA-Public Use
  Company Number: DE-ROCHE-1212926

PATIENT
  Age: 46 Year
  Sex: Female

DRUGS (2)
  1. VEMURAFENIB [Suspect]
     Indication: METASTATIC MALIGNANT MELANOMA
     Dosage: DOSE INTERRUPTED
     Route: 048
     Dates: start: 20130222
  2. VEMURAFENIB [Suspect]
     Dosage: REDUCED DOSE
     Route: 048

REACTIONS (2)
  - Prerenal failure [Recovered/Resolved]
  - Rash [Recovered/Resolved]
